FAERS Safety Report 7522237-5 (Version None)
Quarter: 2011Q2

REPORT INFORMATION
  Report Type: 
  Country: None (occurrence: None)
  Receive Date: 20110519
  Receipt Date: 20110329
  Transmission Date: 20111010
  Serious: Yes (Other)
  Sender: FDA-Public Use
  Company Number: 2011028372

PATIENT
  Age: 68 Year
  Sex: Female
  Weight: 59.8748 kg

DRUGS (22)
  1. VITAMIN B12 [Concomitant]
  2. VERAMYST (FLUTICASONE) [Concomitant]
  3. CARAFATE [Concomitant]
  4. NABUMETONE [Concomitant]
  5. POTASSIUM (POTASSIUM) [Concomitant]
  6. TUMS (CALCIUM CARBONATE) [Concomitant]
  7. HIZENTRA [Suspect]
  8. LORAZEPAM [Concomitant]
  9. ZYRTEC [Concomitant]
  10. ALOE VERA (ALOE VERA) [Concomitant]
  11. NEXIUM [Concomitant]
  12. HIZENTRA [Suspect]
     Indication: IMMUNODEFICIENCY COMMON VARIABLE
     Dosage: (5 G 1X/WEEK, 25 ML OVER 1 HOUR 34 MINUTES 20 % CONCENTRATION SUBCUTANEOUS), (SUBCUTANEOUS)
     Route: 058
     Dates: start: 20110302
  13. OSCAL (CALCIUM CARBONATE) [Concomitant]
  14. DICYCLOMINE [Concomitant]
  15. LOMOTIL [Concomitant]
  16. DONNATAL [Concomitant]
  17. GARLIC (ALLIUM SATIVUM) [Concomitant]
  18. LEXAPRO [Concomitant]
  19. ACETAMINOPHEN [Concomitant]
  20. MULTIVITAMIN (ACCOMIN MULTIVITAMIN) [Concomitant]
  21. GLUCOSAMINE (GLUCOSAMINE) [Concomitant]
  22. VITAMIN D [Concomitant]

REACTIONS (1)
  - RESPIRATORY TRACT INFECTION [None]
